FAERS Safety Report 4455114-7 (Version None)
Quarter: 2004Q3

REPORT INFORMATION
  Report Type: 
  Country: None (occurrence: None)
  Receive Date: 20040908
  Receipt Date: 20040830
  Transmission Date: 20050211
  Serious: Yes (Hospitalization)
  Sender: FDA-Public Use
  Company Number: FR-JNJFOC-20040808349

PATIENT
  Age: 32 Year
  Sex: Female
  Weight: 45 kg

DRUGS (6)
  1. REMICADE [Suspect]
     Indication: ANKYLOSING SPONDYLITIS
     Route: 042
  2. XANAX [Concomitant]
     Route: 049
  3. MOPRAL [Concomitant]
     Route: 049
  4. SEROPRAM [Concomitant]
     Indication: DEPRESSION
     Route: 049
  5. SKENAN [Concomitant]
     Route: 049
  6. FELDENE [Concomitant]
     Route: 049

REACTIONS (6)
  - BLOOD AMYLASE INCREASED [None]
  - CRANIAL NEUROPATHY [None]
  - MIGRAINE [None]
  - NAUSEA [None]
  - PAIN [None]
  - VOMITING [None]
